FAERS Safety Report 4343689-8 (Version None)
Quarter: 2004Q2

REPORT INFORMATION
  Report Type: 
  Country: None (occurrence: None)
  Receive Date: 20040422
  Receipt Date: 20040416
  Transmission Date: 20050107
  Serious: Yes (Hospitalization)
  Sender: FDA-Public Use
  Company Number: 200412961US

PATIENT
  Sex: Female
  Weight: 116.8 kg

DRUGS (8)
  1. DOCETAXEL [Suspect]
     Indication: SQUAMOUS CELL CARCINOMA
     Route: 042
     Dates: start: 20040315, end: 20040315
  2. CELECOXIB [Suspect]
     Indication: SQUAMOUS CELL CARCINOMA
     Route: 048
     Dates: start: 20040315
  3. CISPLATIN [Suspect]
     Indication: SQUAMOUS CELL CARCINOMA
  4. ACCUPRIL [Concomitant]
  5. PAROXETINE HCL [Concomitant]
  6. FUROSEMIDE [Concomitant]
  7. PROTONIX [Concomitant]
  8. KLOR-CON [Concomitant]

REACTIONS (6)
  - BLOOD CREATININE INCREASED [None]
  - BLOOD UREA INCREASED [None]
  - HAEMATOCRIT DECREASED [None]
  - NEUTROPHIL PERCENTAGE INCREASED [None]
  - PLATELET COUNT DECREASED [None]
  - RENAL DISORDER [None]
